FAERS Safety Report 6613581-4 (Version None)
Quarter: 2010Q1

REPORT INFORMATION
  Report Type: 
  Country: None (occurrence: None)
  Receive Date: 20100225
  Receipt Date: 20100217
  Transmission Date: 20100710
  Serious: Yes (Congenital Anomaly, Other)
  Sender: FDA-Public Use
  Company Number: 006392

PATIENT

DRUGS (3)
  1. KEPPRA [Suspect]
     Dosage: (500 MG BID TRANSPLACENTAL)
     Route: 064
  2. TYLENOL-500 [Suspect]
     Indication: HEADACHE
     Dosage: (TRANSPLACENTAL)
     Route: 064
  3. VITAMIN TAB [Concomitant]

REACTIONS (2)
  - ANENCEPHALY [None]
  - MATERNAL DRUGS AFFECTING FOETUS [None]
